FAERS Safety Report 11696151 (Version 1)
Quarter: 2015Q4

REPORT INFORMATION
  Report Type: Spontaneous
  Country: US (occurrence: US)
  Receive Date: 20151104
  Receipt Date: 20151104
  Transmission Date: 20160304
  Serious: Yes (Hospitalization)
  Sender: FDA-Public Use
  Company Number: US-MALLINCKRODT-T201501222

PATIENT
  Sex: Male

DRUGS (3)
  1. GABLOFEN [Suspect]
     Active Substance: BACLOFEN
     Dosage: 1825 MCG/DAY
     Route: 037
  2. GABLOFEN [Suspect]
     Active Substance: BACLOFEN
     Indication: MUSCLE SPASTICITY
     Dosage: 400 MCG/DAY
     Route: 037
  3. GABLOFEN [Suspect]
     Active Substance: BACLOFEN
     Dosage: 2000 MCG/DAY
     Route: 037

REACTIONS (8)
  - Drug effect decreased [Recovered/Resolved]
  - Ventricular tachycardia [Unknown]
  - Drug withdrawal syndrome [Unknown]
  - Urinary tract infection enterococcal [Unknown]
  - Malaise [Unknown]
  - Staphylococcal infection [Unknown]
  - Cardiac disorder [Unknown]
  - Device connection issue [Recovered/Resolved]

NARRATIVE: CASE EVENT DATE: 2015
